FAERS Safety Report 8481431-X (Version None)
Quarter: 2012Q3

REPORT INFORMATION
  Report Type: 
  Country: None (occurrence: None)
  Receive Date: 20120702
  Receipt Date: 20120626
  Transmission Date: 20120928
  Serious: Yes (Death, Other)
  Sender: FDA-Public Use
  Company Number: JP-ASTELLAS-2011JP001125

PATIENT
  Age: 31 Year
  Sex: Female

DRUGS (4)
  1. PROGRAF [Suspect]
     Indication: RENAL TRANSPLANT
     Dosage: UNK
     Route: 065
  2. MYCOPHENOLATE MOFETIL [Concomitant]
     Route: 065
  3. MYCOPHENOLATE MOFETIL [Concomitant]
     Dosage: 500 MG, UNKNOWN/D
     Route: 065
  4. HYDROOXYDAUNORUBICIN [Suspect]

REACTIONS (4)
  - LEIOMYOSARCOMA [None]
  - CYTOMEGALOVIRUS INFECTION [None]
  - SMALL INTESTINAL PERFORATION [None]
  - DIFFUSE LARGE B-CELL LYMPHOMA [None]
